FAERS Safety Report 10681912 (Version 1)
Quarter: 2014Q4

REPORT INFORMATION
  Report Type: Spontaneous
  Country: US (occurrence: None)
  Receive Date: 20141229
  Receipt Date: 20141229
  Transmission Date: 20150529
  Serious: Yes (Life-Threatening, Hospitalization, Disabling, Other)
  Sender: FDA-Public Use
  Company Number: None

PATIENT
  Age: 56 Year
  Sex: Female
  Weight: 99.79 kg

DRUGS (4)
  1. BENADRYL [Suspect]
     Active Substance: DIPHENHYDRAMINE HYDROCHLORIDE
     Indication: AGITATION
     Dosage: STAT INTO THE MUSCLE
     Dates: start: 20140202
  2. SUBUTEX [Suspect]
     Active Substance: BUPRENORPHINE HYDROCHLORIDE
     Indication: DRUG WITHDRAWAL MAINTENANCE THERAPY
     Dosage: TAKEN BY MOUTH
     Dates: start: 20131211, end: 20140129
  3. BENADRYL [Suspect]
     Active Substance: DIPHENHYDRAMINE HYDROCHLORIDE
     Indication: POST-TRAUMATIC STRESS DISORDER
     Dosage: STAT INTO THE MUSCLE
     Dates: start: 20140202
  4. BENADRYL [Suspect]
     Active Substance: DIPHENHYDRAMINE HYDROCHLORIDE
     Indication: MANIA
     Dosage: STAT INTO THE MUSCLE
     Dates: start: 20140202

REACTIONS (9)
  - Aphasia [None]
  - Cerebrovascular accident [None]
  - Documented hypersensitivity to administered product [None]
  - Victim of abuse [None]
  - Mental disorder [None]
  - Drug withdrawal syndrome [None]
  - Victim of sexual abuse [None]
  - Psychogenic seizure [None]
  - Agitation [None]

NARRATIVE: CASE EVENT DATE: 20140202
